FAERS Safety Report 7243600-6 (Version None)
Quarter: 2011Q1

REPORT INFORMATION
  Report Type: 
  Country: None (occurrence: None)
  Receive Date: 20110125
  Receipt Date: 20110114
  Transmission Date: 20110831
  Serious: Yes (Other)
  Sender: FDA-Public Use
  Company Number: PHHY2010US13410

PATIENT
  Sex: Female

DRUGS (1)
  1. FEMARA [Suspect]
     Indication: BREAST CANCER
     Dosage: 2.5 MG DAILY
     Route: 048
     Dates: start: 20100226

REACTIONS (8)
  - LUNG DISORDER [None]
  - PIGMENTATION DISORDER [None]
  - NASOPHARYNGITIS [None]
  - UPPER RESPIRATORY TRACT INFECTION [None]
  - SUBCUTANEOUS NODULE [None]
  - INFLUENZA [None]
  - CARDIAC DISORDER [None]
  - VOMITING [None]
